FAERS Safety Report 20746275 (Version 1)
Quarter: 2022Q2

REPORT INFORMATION
  Report Type: Spontaneous
  Country: US (occurrence: US)
  Receive Date: 20220425
  Receipt Date: 20220425
  Transmission Date: 20220720
  Serious: No
  Sender: FDA-Public Use
  Company Number: US-PFIZER INC-2021717235

PATIENT
  Age: 47 Year
  Sex: Female

DRUGS (5)
  1. GABAPENTIN [Suspect]
     Active Substance: GABAPENTIN
     Dosage: UNK
  2. CELEBREX [Suspect]
     Active Substance: CELECOXIB
     Indication: Spondylitis
     Dosage: UNK
  3. CELEBREX [Suspect]
     Active Substance: CELECOXIB
     Indication: Crohn^s disease
  4. MELOXICAM [Suspect]
     Active Substance: MELOXICAM
     Indication: Spondylitis
  5. MELOXICAM [Suspect]
     Active Substance: MELOXICAM
     Indication: Crohn^s disease

REACTIONS (2)
  - Off label use [Unknown]
  - Arthritis [Unknown]
